FAERS Safety Report 8063766-8 (Version None)
Quarter: 2012Q1

REPORT INFORMATION
  Report Type: 
  Country: None (occurrence: None)
  Receive Date: 20120123
  Receipt Date: 20120112
  Transmission Date: 20120608
  Serious: Yes (Hospitalization)
  Sender: FDA-Public Use
  Company Number: US-ELI_LILLY_AND_COMPANY-US201201004475

PATIENT
  Sex: Male

DRUGS (1)
  1. EFFIENT [Suspect]
     Indication: PLATELET DISORDER
     Dosage: 10 MG, UNKNOWN

REACTIONS (2)
  - MYOCARDIAL INFARCTION [None]
  - DRUG INEFFECTIVE [None]
